FAERS Safety Report 25199397 (Version 2)
Quarter: 2025Q3

REPORT INFORMATION
  Report Type: Spontaneous
  Country: None (occurrence: CA)
  Receive Date: 20250415
  Receipt Date: 20250728
  Transmission Date: 20251020
  Serious: Yes (Hospitalization)
  Sender: MYLAN
  Company Number: CA-MYLANLABS-2024M1003964

PATIENT
  Age: 70 Year
  Sex: Female

DRUGS (76)
  1. REVATIO [Suspect]
     Active Substance: SILDENAFIL CITRATE
     Indication: Connective tissue disorder
     Dosage: 20 MILLIGRAM, TID (THREE TIMES A DAY))
     Dates: start: 20230426
  2. REVATIO [Suspect]
     Active Substance: SILDENAFIL CITRATE
     Indication: Pulmonary arterial hypertension
     Dosage: 20 MILLIGRAM, TID (THREE TIMES A DAY))
     Route: 048
     Dates: start: 20230426
  3. REVATIO [Suspect]
     Active Substance: SILDENAFIL CITRATE
     Dosage: 20 MILLIGRAM, TID (THREE TIMES A DAY))
     Route: 048
     Dates: start: 20230426
  4. REVATIO [Suspect]
     Active Substance: SILDENAFIL CITRATE
     Dosage: 20 MILLIGRAM, TID (THREE TIMES A DAY))
     Dates: start: 20230426
  5. UPTRAVI [Concomitant]
     Active Substance: SELEXIPAG
     Route: 065
  6. UPTRAVI [Concomitant]
     Active Substance: SELEXIPAG
  7. UPTRAVI [Concomitant]
     Active Substance: SELEXIPAG
  8. UPTRAVI [Concomitant]
     Active Substance: SELEXIPAG
     Route: 065
  9. UPTRAVI [Concomitant]
     Active Substance: SELEXIPAG
     Dosage: 1000 MICROGRAM, BID
     Route: 065
  10. UPTRAVI [Concomitant]
     Active Substance: SELEXIPAG
     Dosage: 1000 MICROGRAM, BID
  11. UPTRAVI [Concomitant]
     Active Substance: SELEXIPAG
     Dosage: 1000 MICROGRAM, BID
  12. UPTRAVI [Concomitant]
     Active Substance: SELEXIPAG
     Dosage: 1000 MICROGRAM, BID
     Route: 065
  13. AMBRISENTAN [Concomitant]
     Active Substance: AMBRISENTAN
  14. AMBRISENTAN [Concomitant]
     Active Substance: AMBRISENTAN
     Route: 065
  15. AMBRISENTAN [Concomitant]
     Active Substance: AMBRISENTAN
     Route: 065
  16. AMBRISENTAN [Concomitant]
     Active Substance: AMBRISENTAN
  17. VITAMIN C [Concomitant]
     Active Substance: ASCORBIC ACID
  18. VITAMIN C [Concomitant]
     Active Substance: ASCORBIC ACID
     Route: 065
  19. VITAMIN C [Concomitant]
     Active Substance: ASCORBIC ACID
     Route: 065
  20. VITAMIN C [Concomitant]
     Active Substance: ASCORBIC ACID
  21. FUROSEMIDE [Concomitant]
     Active Substance: FUROSEMIDE
  22. FUROSEMIDE [Concomitant]
     Active Substance: FUROSEMIDE
     Route: 065
  23. FUROSEMIDE [Concomitant]
     Active Substance: FUROSEMIDE
     Route: 065
  24. FUROSEMIDE [Concomitant]
     Active Substance: FUROSEMIDE
  25. SPIRONOLACTONE [Concomitant]
     Active Substance: SPIRONOLACTONE
  26. SPIRONOLACTONE [Concomitant]
     Active Substance: SPIRONOLACTONE
     Route: 065
  27. SPIRONOLACTONE [Concomitant]
     Active Substance: SPIRONOLACTONE
     Route: 065
  28. SPIRONOLACTONE [Concomitant]
     Active Substance: SPIRONOLACTONE
  29. ATORVASTATIN [Concomitant]
     Active Substance: ATORVASTATIN
  30. ATORVASTATIN [Concomitant]
     Active Substance: ATORVASTATIN
     Route: 065
  31. ATORVASTATIN [Concomitant]
     Active Substance: ATORVASTATIN
     Route: 065
  32. ATORVASTATIN [Concomitant]
     Active Substance: ATORVASTATIN
  33. ASPIRIN [Concomitant]
     Active Substance: ASPIRIN
  34. ASPIRIN [Concomitant]
     Active Substance: ASPIRIN
     Route: 065
  35. ASPIRIN [Concomitant]
     Active Substance: ASPIRIN
     Route: 065
  36. ASPIRIN [Concomitant]
     Active Substance: ASPIRIN
  37. CALCIUM [Concomitant]
     Active Substance: CALCIUM
  38. CALCIUM [Concomitant]
     Active Substance: CALCIUM
     Route: 065
  39. CALCIUM [Concomitant]
     Active Substance: CALCIUM
     Route: 065
  40. CALCIUM [Concomitant]
     Active Substance: CALCIUM
  41. APIXABAN [Concomitant]
     Active Substance: APIXABAN
  42. APIXABAN [Concomitant]
     Active Substance: APIXABAN
     Route: 065
  43. APIXABAN [Concomitant]
     Active Substance: APIXABAN
     Route: 065
  44. APIXABAN [Concomitant]
     Active Substance: APIXABAN
  45. DOMPERIDONE [Concomitant]
     Active Substance: DOMPERIDONE
  46. DOMPERIDONE [Concomitant]
     Active Substance: DOMPERIDONE
     Route: 065
  47. DOMPERIDONE [Concomitant]
     Active Substance: DOMPERIDONE
     Route: 065
  48. DOMPERIDONE [Concomitant]
     Active Substance: DOMPERIDONE
  49. PANTOPRAZOLE [Concomitant]
     Active Substance: PANTOPRAZOLE
  50. PANTOPRAZOLE [Concomitant]
     Active Substance: PANTOPRAZOLE
     Route: 065
  51. PANTOPRAZOLE [Concomitant]
     Active Substance: PANTOPRAZOLE
     Route: 065
  52. PANTOPRAZOLE [Concomitant]
     Active Substance: PANTOPRAZOLE
  53. METOPROLOL [Concomitant]
     Active Substance: METOPROLOL
  54. METOPROLOL [Concomitant]
     Active Substance: METOPROLOL
     Route: 065
  55. METOPROLOL [Concomitant]
     Active Substance: METOPROLOL
     Route: 065
  56. METOPROLOL [Concomitant]
     Active Substance: METOPROLOL
  57. VITAMIN D [Concomitant]
     Active Substance: VITAMIN D NOS
  58. VITAMIN D [Concomitant]
     Active Substance: VITAMIN D NOS
     Route: 065
  59. VITAMIN D [Concomitant]
     Active Substance: VITAMIN D NOS
     Route: 065
  60. VITAMIN D [Concomitant]
     Active Substance: VITAMIN D NOS
  61. MIDODRINE [Concomitant]
     Active Substance: MIDODRINE
  62. MIDODRINE [Concomitant]
     Active Substance: MIDODRINE
     Route: 065
  63. MIDODRINE [Concomitant]
     Active Substance: MIDODRINE
     Route: 065
  64. MIDODRINE [Concomitant]
     Active Substance: MIDODRINE
  65. ALENDRONATE [Concomitant]
     Active Substance: ALENDRONATE SODIUM
  66. ALENDRONATE [Concomitant]
     Active Substance: ALENDRONATE SODIUM
     Route: 065
  67. ALENDRONATE [Concomitant]
     Active Substance: ALENDRONATE SODIUM
     Route: 065
  68. ALENDRONATE [Concomitant]
     Active Substance: ALENDRONATE SODIUM
  69. IRON [Concomitant]
     Active Substance: IRON
  70. IRON [Concomitant]
     Active Substance: IRON
     Route: 065
  71. IRON [Concomitant]
     Active Substance: IRON
     Route: 065
  72. IRON [Concomitant]
     Active Substance: IRON
  73. PROBIOTICS NOS [Concomitant]
     Active Substance: PROBIOTICS NOS
  74. PROBIOTICS NOS [Concomitant]
     Active Substance: PROBIOTICS NOS
     Route: 065
  75. PROBIOTICS NOS [Concomitant]
     Active Substance: PROBIOTICS NOS
     Route: 065
  76. PROBIOTICS NOS [Concomitant]
     Active Substance: PROBIOTICS NOS

REACTIONS (4)
  - Hospitalisation [Unknown]
  - Adverse event [Unknown]
  - Headache [Not Recovered/Not Resolved]
  - Diarrhoea [Recovered/Resolved]

NARRATIVE: CASE EVENT DATE: 20240105
